FAERS Safety Report 20010693 (Version 2)
Quarter: 2021Q4

REPORT INFORMATION
  Report Type: Spontaneous
  Country: CN (occurrence: CN)
  Receive Date: 20211028
  Receipt Date: 20211121
  Transmission Date: 20220303
  Serious: Yes (Life-Threatening, Other)
  Sender: FDA-Public Use
  Company Number: CN-009507513-2110CHN007159

PATIENT
  Age: 47 Year
  Sex: Female
  Weight: 41 kg

DRUGS (4)
  1. CILASTATIN SODIUM\IMIPENEM [Suspect]
     Active Substance: CILASTATIN SODIUM\IMIPENEM
     Indication: Peritonitis
     Dosage: DOSE: 1 G, FREQUENCY: ONCE DAILY (QD)
     Route: 033
     Dates: start: 20211002, end: 20211015
  2. MOXALACTAM DISODIUM [Suspect]
     Active Substance: MOXALACTAM DISODIUM
     Indication: Infection
     Dosage: DOSE: 1 G, FREQUENCY: TWICE A DAY (BID)
     Route: 041
     Dates: start: 20211008, end: 20211014
  3. SODIUM CHLORIDE [Concomitant]
     Active Substance: SODIUM CHLORIDE
     Indication: Vehicle solution use
     Dosage: DOSE: 10 ML, FREQUENCY: QD
     Route: 033
     Dates: start: 20211002, end: 20211015
  4. SODIUM CHLORIDE [Concomitant]
     Active Substance: SODIUM CHLORIDE
     Indication: Vehicle solution use
     Dosage: DOSE: 100 ML, FREQUENCY: TWICE A DAY (BID)
     Route: 041
     Dates: start: 20211008, end: 20211014

REACTIONS (12)
  - Generalised tonic-clonic seizure [Recovering/Resolving]
  - Blood pressure increased [Recovering/Resolving]
  - Respiratory rate increased [Recovering/Resolving]
  - Heart rate increased [Recovering/Resolving]
  - Vomiting [Recovering/Resolving]
  - Nausea [Recovering/Resolving]
  - Productive cough [Unknown]
  - Irritability [Unknown]
  - Logorrhoea [Unknown]
  - Product use issue [Unknown]
  - Incorrect route of product administration [Unknown]
  - Product preparation issue [Unknown]

NARRATIVE: CASE EVENT DATE: 20211002
